FAERS Safety Report 18706667 (Version 1)
Quarter: 2021Q1

REPORT INFORMATION
  Report Type: Other
  Country: JP (occurrence: JP)
  Receive Date: 20210106
  Receipt Date: 20210106
  Transmission Date: 20210419
  Serious: Yes (Other)
  Sender: FDA-Public Use
  Company Number: JP-ROCHE-2743747

PATIENT

DRUGS (1)
  1. RITUXIMAB. [Suspect]
     Active Substance: RITUXIMAB
     Indication: NEPHROTIC SYNDROME
     Route: 041

REACTIONS (5)
  - Leukopenia [Unknown]
  - Infusion related reaction [Unknown]
  - Myocarditis [Unknown]
  - Abscess limb [Unknown]
  - Hypogammaglobulinaemia [Unknown]
